FAERS Safety Report 17259848 (Version 2)
Quarter: 2020Q1

REPORT INFORMATION
  Report Type: Spontaneous
  Country: US (occurrence: US)
  Receive Date: 20200111
  Receipt Date: 20200131
  Transmission Date: 20200409
  Serious: Yes (Death, Hospitalization, Other)
  Sender: FDA-Public Use
  Company Number: US-009507513-2001USA001738

PATIENT
  Sex: Female
  Weight: 112.47 kg

DRUGS (3)
  1. JANUMET [Suspect]
     Active Substance: METFORMIN HYDROCHLORIDE\SITAGLIPTIN PHOSPHATE
     Dosage: 50-500 MG, ONE TABLET TWICE DAILY
     Route: 048
     Dates: start: 20120823, end: 20121103
  2. COUMADIN [Concomitant]
     Active Substance: WARFARIN SODIUM
     Dosage: UNK
  3. JANUMET [Suspect]
     Active Substance: METFORMIN HYDROCHLORIDE\SITAGLIPTIN PHOSPHATE
     Dosage: 50-500 MG, ONE TABLET TWICE DAILY
     Route: 048
     Dates: start: 20111229, end: 20120505

REACTIONS (28)
  - Metastases to lymph nodes [Unknown]
  - Tachycardia [Unknown]
  - Knee arthroplasty [Unknown]
  - Anaemia [Unknown]
  - Rhonchi [Unknown]
  - Emotional distress [Unknown]
  - Diabetes mellitus inadequate control [Unknown]
  - International normalised ratio decreased [Unknown]
  - Metastatic neoplasm [Unknown]
  - Large intestine polyp [Unknown]
  - Transferrin decreased [Unknown]
  - Gastrointestinal stoma complication [Unknown]
  - Pancreatic carcinoma metastatic [Unknown]
  - Intra-abdominal fluid collection [Recovered/Resolved]
  - Anxiety [Unknown]
  - Tumour invasion [Unknown]
  - Fibrin D dimer increased [Unknown]
  - Rotator cuff repair [Unknown]
  - Pyrexia [Unknown]
  - Breath sounds abnormal [Unknown]
  - Death [Fatal]
  - Oedema [Unknown]
  - Pancreatitis acute [Unknown]
  - Knee operation [Unknown]
  - Agitation [Unknown]
  - Neutropenia [Unknown]
  - Splenectomy [Unknown]
  - Knee arthroplasty [Unknown]

NARRATIVE: CASE EVENT DATE: 2012
